FAERS Safety Report 13296013 (Version 1)
Quarter: 2017Q1

REPORT INFORMATION
  Report Type: Spontaneous
  Country: PL (occurrence: PL)
  Receive Date: 20170304
  Receipt Date: 20170304
  Transmission Date: 20170428
  Serious: Yes (Other)
  Sender: FDA-Public Use
  Company Number: PL-SUN PHARMACEUTICAL INDUSTRIES LTD-2017RR-135096

PATIENT
  Age: 68 Year
  Sex: Male
  Weight: 188 kg

DRUGS (11)
  1. FUROSEMIDE. [Suspect]
     Active Substance: FUROSEMIDE
     Indication: CARDIAC FAILURE
     Dosage: 40 MG, BID, IN THE MORNING AND AT NOON
     Route: 065
  2. NITROGLYCERIN. [Suspect]
     Active Substance: NITROGLYCERIN
     Indication: CARDIAC FAILURE
     Dosage: WHENEVER NECESSARY
     Route: 065
  3. ACETYLSALICYLIC ACID [Suspect]
     Active Substance: ASPIRIN
     Indication: CARDIAC FAILURE
     Dosage: 75 MG, AFTER BREAKFAST
     Route: 065
  4. RAMIPRIL. [Suspect]
     Active Substance: RAMIPRIL
     Indication: CARDIAC FAILURE
     Dosage: 5 MG IN THE EVENING
     Route: 065
  5. EPLERENONE. [Suspect]
     Active Substance: EPLERENONE
     Indication: CARDIAC FAILURE
     Dosage: 25 MG, IN THE MORNING
     Route: 065
  6. DOXAZOSIN [Suspect]
     Active Substance: DOXAZOSIN\DOXAZOSIN MESYLATE
     Indication: CARDIAC FAILURE
     Dosage: 4 MG, IN THE EVENING
     Route: 065
  7. ATORVASTATIN [Suspect]
     Active Substance: ATORVASTATIN
     Indication: CARDIAC FAILURE
     Dosage: 40 MG, IN THE EVENING
     Route: 065
  8. TIOTROPIUM DPI [Suspect]
     Active Substance: TIOTROPIUM BROMIDE
     Indication: CARDIAC FAILURE
     Dosage: 18 PG, BY INHALATION
     Route: 055
  9. RAMIPRIL. [Suspect]
     Active Substance: RAMIPRIL
     Indication: CARDIAC FAILURE
     Dosage: 10 MG, DAILY
     Route: 065
  10. CARVEDILOL. [Suspect]
     Active Substance: CARVEDILOL
     Indication: CARDIAC FAILURE
     Dosage: 12.5 MG, BID,  IN THE MORNING AND IN THE EVENING
     Route: 065
  11. FINASTERIDE. [Suspect]
     Active Substance: FINASTERIDE
     Indication: CARDIAC FAILURE
     Dosage: 5 MG, IN THE EVENING
     Route: 065

REACTIONS (5)
  - Dizziness [Unknown]
  - Somnolence [Unknown]
  - Dysuria [Not Recovered/Not Resolved]
  - Dyspnoea [Unknown]
  - Asthenia [Unknown]
